FAERS Safety Report 9784196 (Version 1)
Quarter: 2013Q4

REPORT INFORMATION
  Report Type: Spontaneous
  Country: DK (occurrence: DK)
  Receive Date: 20131226
  Receipt Date: 20131226
  Transmission Date: 20140711
  Serious: Yes (Disabling)
  Sender: FDA-Public Use
  Company Number: DK-GE HEALTHCARE MEDICAL DIAGNOSTICS-OSCN-PR-1312S-0129

PATIENT
  Sex: Female

DRUGS (6)
  1. OMNISCAN [Suspect]
     Indication: PRODUCT USED FOR UNKNOWN INDICATION
     Route: 042
  2. MAGNEVIST [Suspect]
     Indication: PITUITARY ENLARGEMENT
     Route: 042
     Dates: start: 20070125, end: 20070125
  3. GADOVIST [Suspect]
     Indication: PITUITARY ENLARGEMENT
     Route: 042
     Dates: start: 20080131, end: 20080131
  4. RESOVIST [Suspect]
     Indication: LIVER DISORDER
     Route: 042
     Dates: start: 20070816, end: 20070816
  5. PERSANTIN [Concomitant]
  6. TRADOLAN [Concomitant]

REACTIONS (1)
  - Nephrogenic systemic fibrosis [Not Recovered/Not Resolved]
